FAERS Safety Report 8888767 (Version 2)
Quarter: 2013Q2

REPORT INFORMATION
  Report Type: Spontaneous
  Country: BE (occurrence: BE)
  Receive Date: 20121106
  Receipt Date: 20130513
  Transmission Date: 20140414
  Serious: Yes (Death)
  Sender: FDA-Public Use
  Company Number: BE-TEVA-367387ISR

PATIENT
  Age: 52 Year
  Sex: Female
  Weight: 42 kg

DRUGS (6)
  1. FLUOROURACIL [Suspect]
     Indication: COLORECTAL CANCER METASTATIC
     Dosage: 400 MG/M2 DAILY;
     Route: 040
     Dates: start: 20120725, end: 20121001
  2. FLUOROURACIL [Suspect]
     Indication: COLORECTAL CANCER METASTATIC
     Dosage: 2400 MG/M2 DAILY;
     Route: 042
     Dates: start: 20120725, end: 20121003
  3. OXALIPLATIN [Suspect]
     Indication: COLORECTAL CANCER METASTATIC
     Dosage: 85 MG/M2 DAILY;
     Route: 042
     Dates: start: 20120725, end: 20121001
  4. LEUCOVORIN CALCIUM [Suspect]
     Indication: COLORECTAL CANCER METASTATIC
     Dosage: 200 MG/M2 DAILY;
     Route: 042
     Dates: start: 20120725, end: 20121001
  5. BEVACIZUMAB [Suspect]
     Indication: COLORECTAL CANCER METASTATIC
     Dosage: 5 MG/KG DAILY;
     Route: 042
     Dates: start: 20120725, end: 20121001
  6. DAFALGAN [Concomitant]
     Dates: start: 20121001, end: 20121007

REACTIONS (2)
  - Sepsis [Fatal]
  - Large intestine perforation [Fatal]
